FAERS Safety Report 8547313-X (Version None)
Quarter: 2012Q3

REPORT INFORMATION
  Report Type: 
  Country: None (occurrence: None)
  Receive Date: 20120727
  Receipt Date: 20120319
  Transmission Date: 20120928
  Serious: No
  Sender: FDA-Public Use
  Company Number: US-ASTRAZENECA-2012SE18513

PATIENT
  Sex: Male

DRUGS (10)
  1. AMBIEN [Suspect]
     Indication: BIPOLAR I DISORDER
     Route: 048
     Dates: start: 20120201
  2. AMBIEN [Suspect]
     Indication: SCHIZOPHRENIA
     Route: 048
     Dates: start: 20120201
  3. SEROQUEL [Suspect]
     Indication: SLEEP DISORDER
     Route: 048
     Dates: end: 20120201
  4. INVEGA SUSTENNA [Suspect]
     Route: 030
     Dates: start: 20120206, end: 20120206
  5. INVEGA SUSTENNA [Suspect]
     Route: 030
     Dates: end: 20120201
  6. AMBIEN [Suspect]
     Indication: SLEEP DISORDER
     Route: 048
     Dates: start: 20120201
  7. INVEGA SUSTENNA [Suspect]
     Route: 030
     Dates: end: 20120201
  8. INVEGA SUSTENNA [Suspect]
     Route: 030
     Dates: end: 20120201
  9. INVEGA SUSTENNA [Suspect]
     Indication: BIPOLAR I DISORDER
     Route: 030
     Dates: start: 20120206, end: 20120206
  10. INVEGA SUSTENNA [Suspect]
     Indication: SCHIZOPHRENIA
     Route: 030
     Dates: start: 20120206, end: 20120206

REACTIONS (3)
  - NIGHTMARE [None]
  - PSYCHOTIC DISORDER [None]
  - REFUSAL OF TREATMENT BY PATIENT [None]
